FAERS Safety Report 10264165 (Version 1)
Quarter: 2014Q2

REPORT INFORMATION
  Report Type: Spontaneous
  Country: GB (occurrence: None)
  Receive Date: 20140624
  Receipt Date: 20140624
  Transmission Date: 20141212
  Serious: Yes (Other)
  Sender: FDA-Public Use
  Company Number: AUR-APL-2014-06660

PATIENT
  Age: 43 Year
  Sex: Male

DRUGS (5)
  1. AMLODIPINE (AMLODIPINE) [Suspect]
     Indication: PRODUCT USED FOR UNKNOWN INDICATION
     Dates: end: 20131029
  2. DEPAKOTE (VALPROATE SEMISODIUM) [Suspect]
     Indication: PRODUCT USED FOR UNKNOWN INDICATION
  3. VALPROATE SEMISODIUM (VALPROATE SEMISODIUM) [Suspect]
     Indication: PRODUCT USED FOR UNKNOWN INDICATION
     Dates: end: 20131029
  4. ZAPONEX (CLOZAPINE) [Suspect]
     Indication: SCHIZOPHRENIA
     Route: 048
     Dates: start: 20100929, end: 20131014
  5. PIRENZEPINE (PIRENZEPINE) [Concomitant]

REACTIONS (5)
  - Hepatitis C [None]
  - Splenomegaly [None]
  - Thrombocytopenia [None]
  - Neutropenia [None]
  - Leukopenia [None]
